FAERS Safety Report 4358694-5 (Version None)
Quarter: 2004Q2

REPORT INFORMATION
  Report Type: 
  Country: None (occurrence: None)
  Receive Date: 20040511
  Receipt Date: 20040428
  Transmission Date: 20050107
  Serious: Yes (Other)
  Sender: FDA-Public Use
  Company Number: 2004028893

PATIENT
  Age: 44 Year
  Sex: Male
  Weight: 127.0072 kg

DRUGS (3)
  1. VIAGRA [Suspect]
     Indication: ILL-DEFINED DISORDER
  2. OTHER ANTIHYPERTENSIVES (OTHER ANTIHYPERTENSIVES) [Concomitant]
  3. CETIRIZINE HCL [Concomitant]

REACTIONS (3)
  - DEPRESSED LEVEL OF CONSCIOUSNESS [None]
  - MENTAL IMPAIRMENT [None]
  - VISION BLURRED [None]
